FAERS Safety Report 14657806 (Version 1)
Quarter: 2018Q1

REPORT INFORMATION
  Report Type: Spontaneous
  Country: FI (occurrence: FI)
  Receive Date: 20180320
  Receipt Date: 20180320
  Transmission Date: 20180509
  Serious: Yes (Other)
  Sender: FDA-Public Use
  Company Number: FI-SUN PHARMACEUTICAL INDUSTRIES LTD-2018RR-167128

PATIENT
  Age: 27 Year
  Sex: Female

DRUGS (2)
  1. LEVETIRACETAM. [Suspect]
     Active Substance: LEVETIRACETAM
     Indication: EPILEPSY
     Dosage: UNK ()
     Route: 065
  2. LAMOTRIGINE. [Suspect]
     Active Substance: LAMOTRIGINE
     Indication: EPILEPSY
     Dosage: UNK ()
     Route: 065

REACTIONS (10)
  - Epilepsy [Unknown]
  - Anxiety [Unknown]
  - Nervousness [Unknown]
  - Irregular sleep phase [Unknown]
  - Sleep apnoea syndrome [Unknown]
  - Terminal insomnia [Unknown]
  - Depressed mood [Unknown]
  - Middle insomnia [Unknown]
  - Fatigue [Unknown]
  - Insomnia [Unknown]
